FAERS Safety Report 5782503-0 (Version None)
Quarter: 2008Q2

REPORT INFORMATION
  Report Type: 
  Country: None (occurrence: None)
  Receive Date: 20080618
  Receipt Date: 20080611
  Transmission Date: 20081010
  Serious: Yes (Life-Threatening, Hospitalization)
  Sender: FDA-Public Use
  Company Number: E2020-02764-SPO-JP

PATIENT
  Age: 81 Year
  Sex: Male

DRUGS (7)
  1. ARICEPT [Suspect]
     Indication: DEMENTIA ALZHEIMER'S TYPE
     Dosage: 3 MG, 1 IN 1 D, ORAL, 5 MG, 1 IN 1 D, ORAL
     Route: 048
     Dates: end: 20080326
  2. ARICEPT [Suspect]
     Indication: DEMENTIA ALZHEIMER'S TYPE
     Dosage: 3 MG, 1 IN 1 D, ORAL, 5 MG, 1 IN 1 D, ORAL
     Route: 048
     Dates: start: 20060427
  3. NORVASC [Concomitant]
  4. OLMETEC (OLMESARTAN) [Concomitant]
  5. AMOBAN (ZOPICLONE) [Concomitant]
  6. FERROMIA (FERROUS CITRATE) [Concomitant]
  7. MAGNESIUM OXIDE (MAGNESIUM OXIDE) [Concomitant]

REACTIONS (9)
  - ANOREXIA [None]
  - BLOOD PRESSURE DECREASED [None]
  - BRADYCARDIA [None]
  - ELECTROCARDIOGRAM QT PROLONGED [None]
  - LABORATORY TEST ABNORMAL [None]
  - LISTLESS [None]
  - MALAISE [None]
  - PNEUMONIA [None]
  - SINOATRIAL BLOCK [None]
